FAERS Safety Report 19027144 (Version 1)
Quarter: 2021Q1

REPORT INFORMATION
  Report Type: Spontaneous
  Country: US (occurrence: US)
  Receive Date: 20210318
  Receipt Date: 20210318
  Transmission Date: 20210420
  Serious: Yes (Other)
  Sender: FDA-Public Use
  Company Number: US-JNJFOC-20210313385

PATIENT
  Sex: Male

DRUGS (17)
  1. INVEGA TRINZA [Suspect]
     Active Substance: PALIPERIDONE PALMITATE
  2. QUETIAPINE. [Suspect]
     Active Substance: QUETIAPINE
     Indication: SCHIZOPHRENIA
  3. RISPERDAL [Concomitant]
     Active Substance: RISPERIDONE
     Indication: SCHIZOPHRENIA
     Route: 065
  4. CLOZAPINE. [Suspect]
     Active Substance: CLOZAPINE
     Indication: SCHIZOPHRENIA
  5. PALIPERIDONE. [Concomitant]
     Active Substance: PALIPERIDONE
     Indication: SCHIZOPHRENIA
  6. RISPERDAL CONSTA [Suspect]
     Active Substance: RISPERIDONE
     Route: 030
  7. INVEGA TRINZA [Suspect]
     Active Substance: PALIPERIDONE PALMITATE
  8. OLANZAPINE. [Suspect]
     Active Substance: OLANZAPINE
     Indication: SCHIZOPHRENIA
  9. HALOPERIDOL. [Suspect]
     Active Substance: HALOPERIDOL
     Indication: SCHIZOPHRENIA
     Route: 065
  10. RISPERDAL CONSTA [Suspect]
     Active Substance: RISPERIDONE
     Indication: SCHIZOPHRENIA
     Route: 030
  11. INVEGA TRINZA [Suspect]
     Active Substance: PALIPERIDONE PALMITATE
     Indication: SCHIZOPHRENIA
     Route: 030
  12. ILOPERIDONE. [Suspect]
     Active Substance: ILOPERIDONE
     Indication: SCHIZOPHRENIA
  13. SERTRALINE [Suspect]
     Active Substance: SERTRALINE HYDROCHLORIDE
     Indication: DEPRESSION
  14. RISPERDAL CONSTA [Suspect]
     Active Substance: RISPERIDONE
  15. RISPERDAL CONSTA [Suspect]
     Active Substance: RISPERIDONE
  16. LURASIDONE [Suspect]
     Active Substance: LURASIDONE
     Indication: SCHIZOPHRENIA
  17. FLUOXETINE [Suspect]
     Active Substance: FLUOXETINE HYDROCHLORIDE
     Indication: DEPRESSION

REACTIONS (12)
  - Chronic obstructive pulmonary disease [Unknown]
  - Electrocardiogram QT prolonged [Unknown]
  - Seizure [Unknown]
  - Obesity [Unknown]
  - Hyperprolactinaemia [Unknown]
  - Type 2 diabetes mellitus [Unknown]
  - Hypertension [Unknown]
  - Akathisia [Unknown]
  - Tardive dyskinesia [Unknown]
  - Neutropenia [Unknown]
  - Hyperlipidaemia [Unknown]
  - Tremor [Unknown]
